FAERS Safety Report 14987794 (Version 2)
Quarter: 2018Q2

REPORT INFORMATION
  Report Type: Spontaneous
  Country: TH (occurrence: TH)
  Receive Date: 20180608
  Receipt Date: 20180626
  Transmission Date: 20180711
  Serious: Yes (Hospitalization, Other)
  Sender: FDA-Public Use
  Company Number: TH-ROCHE-2136395

PATIENT
  Age: 71 Year
  Sex: Male
  Weight: 75 kg

DRUGS (7)
  1. SENOKOT [Concomitant]
     Active Substance: SENNOSIDES
  2. ACTILYSE [Suspect]
     Active Substance: ALTEPLASE
     Indication: ISCHAEMIC STROKE
  3. ACTILYSE [Suspect]
     Active Substance: ALTEPLASE
     Indication: COMPUTERISED TOMOGRAM HEAD ABNORMAL
  4. VITAMIN B COMPLEX [Concomitant]
     Active Substance: CYANOCOBALAMIN\DEXPANTHENOL\NIACINAMIDE\PYRIDOXINE HYDROCHLORIDE\RIBOFLAVIN 5^-PHOSPHATE SODIUM\THIAMINE HYDROCHLORIDE\VITAMIN B COMPLEX
  5. PARACETAMOL [Concomitant]
     Active Substance: ACETAMINOPHEN
  6. ACTILYSE [Suspect]
     Active Substance: ALTEPLASE
     Indication: CEREBROVASCULAR ACCIDENT
     Dosage: DAILY DOSE: 0.9 MG/KG
     Route: 042
  7. OMEPRAZOLE. [Concomitant]
     Active Substance: OMEPRAZOLE

REACTIONS (10)
  - Muscular weakness [Unknown]
  - Pyrexia [Unknown]
  - Diastolic dysfunction [Unknown]
  - Haemorrhagic transformation stroke [Recovered/Resolved]
  - Cardiomyopathy [Unknown]
  - Cerebral infarction [Unknown]
  - Confusional state [Unknown]
  - Urinary tract infection [Recovered/Resolved]
  - Hypertension [Recovered/Resolved]
  - Depressed mood [Unknown]

NARRATIVE: CASE EVENT DATE: 20170518
